FAERS Safety Report 17049909 (Version 1)
Quarter: 2019Q4

REPORT INFORMATION
  Report Type: Spontaneous
  Country: FR (occurrence: FR)
  Receive Date: 20191119
  Receipt Date: 20191119
  Transmission Date: 20200122
  Serious: Yes (Other)
  Sender: FDA-Public Use
  Company Number: FR-ELI_LILLY_AND_COMPANY-FR201910012797

PATIENT
  Age: 63 Year
  Sex: Female
  Weight: 113 kg

DRUGS (1)
  1. TALTZ [Suspect]
     Active Substance: IXEKIZUMAB
     Indication: PSORIASIS
     Dosage: 160 MG, EVERY TWO WEEKS
     Route: 058
     Dates: start: 20181016, end: 201903

REACTIONS (4)
  - Weight increased [Not Recovered/Not Resolved]
  - Depression [Recovered/Resolved]
  - Increased appetite [Unknown]
  - Overdose [Unknown]

NARRATIVE: CASE EVENT DATE: 201901
